FAERS Safety Report 12969880 (Version 3)
Quarter: 2017Q2

REPORT INFORMATION
  Report Type: Spontaneous
  Country: US (occurrence: US)
  Receive Date: 20161123
  Receipt Date: 20170612
  Transmission Date: 20170830
  Serious: Yes (Hospitalization)
  Sender: FDA-Public Use
  Company Number: US-MALLINCKRODT-T201605581

PATIENT
  Age: 44 Year
  Sex: Male
  Weight: 87 kg

DRUGS (11)
  1. H.P. ACTHAR [Suspect]
     Active Substance: CORTICOTROPIN
     Indication: ALBUMINURIA
     Dosage: 40 UNITS /0.5 ML, TWICE WEEKLY
     Route: 058
     Dates: start: 20160820
  2. CITRACAL PLUS D [Concomitant]
  3. H.P. ACTHAR [Suspect]
     Active Substance: CORTICOTROPIN
     Indication: BILIRUBINURIA
     Dosage: 2 TIMES PER WEEK, VARIES EACH WEEK
     Route: 058
     Dates: start: 20160820
  4. H.P. ACTHAR [Suspect]
     Active Substance: CORTICOTROPIN
     Indication: GLOMERULONEPHRITIS MEMBRANOUS
  5. LISINOPRIL. [Concomitant]
     Active Substance: LISINOPRIL
  6. LIPITOR [Concomitant]
     Active Substance: ATORVASTATIN CALCIUM
  7. FENOFIBRIC ACID. [Concomitant]
     Active Substance: FENOFIBRIC ACID
  8. MULTIVITAMIN [Concomitant]
     Active Substance: VITAMINS
  9. H.P. ACTHAR [Suspect]
     Active Substance: CORTICOTROPIN
     Indication: PROTEINURIA
     Dosage: 80 UNITS/ 1ML , 2 TIMES PER WEEK
     Route: 058
     Dates: start: 201603, end: 2016
  10. H.P. ACTHAR [Suspect]
     Active Substance: CORTICOTROPIN
     Indication: GLOMERULONEPHRITIS
     Dosage: 40UNITS TWICE PER WEEK, (MON+THURS)
     Route: 058
     Dates: start: 201602, end: 2016
  11. LASIX [Concomitant]
     Active Substance: FUROSEMIDE

REACTIONS (6)
  - Hypertension [Recovering/Resolving]
  - Migraine [Not Recovered/Not Resolved]
  - Neurological examination abnormal [Unknown]
  - Somnolence [Not Recovered/Not Resolved]
  - Headache [Unknown]
  - Drug dose omission [Not Recovered/Not Resolved]

NARRATIVE: CASE EVENT DATE: 2016
